FAERS Safety Report 8362421 (Version 2)
Quarter: 2015Q1

REPORT INFORMATION
  Report Type: Report from Study
  Country: US (occurrence: US)
  Receive Date: 20120130
  Receipt Date: 20150226
  Transmission Date: 20150721
  Serious: Yes (Death)
  Sender: FDA-Public Use
  Company Number: US-ROCHE-1034543

PATIENT
  Sex: Female
  Weight: 44.49 kg

DRUGS (5)
  1. AVASTIN [Suspect]
     Active Substance: BEVACIZUMAB
     Indication: BREAST CANCER FEMALE
     Dosage: 425 MG ON 01/FEB/2008, 420 MG ON 15/FEB/2008
     Route: 042
     Dates: start: 20071224
  2. DEXAMETHASONE SODIUM PHOSPHATE. [Concomitant]
     Active Substance: DEXAMETHASONE SODIUM PHOSPHATE
     Route: 042
  3. NEUPOGEN [Concomitant]
     Active Substance: FILGRASTIM
     Route: 058
  4. CARBOPLATIN. [Concomitant]
     Active Substance: CARBOPLATIN
     Route: 042
  5. ZOMETA [Concomitant]
     Active Substance: ZOLEDRONIC ACID
     Route: 042

REACTIONS (8)
  - Areflexia [Unknown]
  - Nausea [Unknown]
  - Death [Fatal]
  - Alopecia [Unknown]
  - Paraesthesia [Unknown]
  - Fatigue [Unknown]
  - Constipation [Unknown]
  - Decreased appetite [Unknown]
